FAERS Safety Report 14635261 (Version 3)
Quarter: 2018Q2

REPORT INFORMATION
  Report Type: Other
  Country: US (occurrence: US)
  Receive Date: 20180314
  Receipt Date: 20180606
  Transmission Date: 20180711
  Serious: Yes (Death, Hospitalization, Disabling, Other)
  Sender: FDA-Public Use
  Company Number: US-ACORDA-ACO_147500_2018

PATIENT
  Sex: Female

DRUGS (1)
  1. AMPYRA [Suspect]
     Active Substance: DALFAMPRIDINE
     Indication: MULTIPLE SCLEROSIS
     Dosage: 10 MG, Q 12 HRS
     Route: 048
     Dates: start: 20170529, end: 20180113

REACTIONS (3)
  - Respiratory failure [Fatal]
  - Cardiac failure [Fatal]
  - Multiple sclerosis [Unknown]
